APPROVED DRUG PRODUCT: VINORELBINE TARTRATE
Active Ingredient: VINORELBINE TARTRATE
Strength: EQ 10MG BASE/ML
Dosage Form/Route: INJECTABLE;INJECTION
Application: A200148 | Product #001
Applicant: RISING PHARMA HOLDINGS INC
Approved: Aug 31, 2012 | RLD: No | RS: No | Type: DISCN